FAERS Safety Report 7709453-4 (Version None)
Quarter: 2011Q3

REPORT INFORMATION
  Report Type: 
  Country: None (occurrence: None)
  Receive Date: 20110825
  Receipt Date: 20110817
  Transmission Date: 20111222
  Serious: Yes (Hospitalization)
  Sender: FDA-Public Use
  Company Number: US-BAYER-2011-004818

PATIENT
  Age: 33 Year
  Sex: Female
  Weight: 81.633 kg

DRUGS (8)
  1. PRILOSEC [Concomitant]
  2. HYDROCHLOROTHIAZIDE [Concomitant]
     Indication: HYPERTENSION
     Dosage: 25 MG, UNK
     Route: 048
  3. PEPCID [Concomitant]
     Indication: GASTROOESOPHAGEAL REFLUX DISEASE
  4. LISINOPRIL [Concomitant]
  5. YASMIN [Suspect]
  6. XENICAL [Concomitant]
     Dosage: 120 MG, UNK
     Route: 048
  7. DROSPIRENONE AND ETHINYL ESTRADIOL [Suspect]
     Dosage: UNK
     Route: 048
     Dates: start: 20000101, end: 20070101
  8. MERIDIA [Concomitant]
     Dosage: 15 MG, UNK
     Route: 048

REACTIONS (5)
  - CHOLECYSTITIS [None]
  - CHOLELITHIASIS [None]
  - PAIN [None]
  - EMOTIONAL DISTRESS [None]
  - INJURY [None]
